FAERS Safety Report 20975757 (Version 1)
Quarter: 2022Q2

REPORT INFORMATION
  Report Type: Spontaneous
  Country: DE (occurrence: DE)
  Receive Date: 20220617
  Receipt Date: 20220617
  Transmission Date: 20220720
  Serious: Yes (Life-Threatening, Hospitalization, Disabling)
  Sender: FDA-Public Use
  Company Number: None

PATIENT
  Age: 14 Year
  Sex: Male
  Weight: 37 kg

DRUGS (1)
  1. NELARABINE [Suspect]
     Active Substance: NELARABINE
     Indication: Acute lymphocytic leukaemia
     Dosage: 820 MG, QD (DAILY DOSE: 820 MG MILLGRAM(S) EVERY DAYS)
     Route: 042
     Dates: start: 20160914, end: 20160918

REACTIONS (7)
  - Myelopathy [Unknown]
  - Paralysis [Unknown]
  - Polyneuropathy [Unknown]
  - Micturition disorder [Unknown]
  - Dyschezia [Unknown]
  - Sensory level abnormal [Unknown]
  - Leukoencephalopathy [Unknown]

NARRATIVE: CASE EVENT DATE: 20160918
